FAERS Safety Report 8502293-8 (Version None)
Quarter: 2012Q3

REPORT INFORMATION
  Report Type: 
  Country: None (occurrence: None)
  Receive Date: 20120711
  Receipt Date: 20110707
  Transmission Date: 20120928
  Serious: No
  Sender: FDA-Public Use
  Company Number: US-COVIDIEN/TYCO HEALTHCARE/MALLINCKRODT-T201101379

PATIENT
  Sex: Female

DRUGS (2)
  1. ANTIPSYCHOTICS [Concomitant]
     Indication: INSOMNIA
     Dosage: UNK
  2. OXYCODONE HCL [Suspect]
     Dosage: 30 MG, TID, PRN
     Dates: start: 20110101, end: 20110701

REACTIONS (6)
  - INSOMNIA [None]
  - NAUSEA [None]
  - VOMITING [None]
  - DIARRHOEA [None]
  - FEAR [None]
  - TREATMENT NONCOMPLIANCE [None]
